FAERS Safety Report 6171266-5 (Version None)
Quarter: 2009Q2

REPORT INFORMATION
  Report Type: 
  Country: None (occurrence: None)
  Receive Date: 20090429
  Receipt Date: 20090422
  Transmission Date: 20091009
  Serious: Yes (Hospitalization, Disabling)
  Sender: FDA-Public Use
  Company Number: CA-ASTRAZENECA-2009UW10146

PATIENT
  Age: 66 Year
  Sex: Male

DRUGS (13)
  1. CRESTOR [Suspect]
     Indication: DYSLIPIDAEMIA
     Route: 048
     Dates: start: 20071201, end: 20090201
  2. AMIODARONE [Suspect]
     Indication: ATRIAL FIBRILLATION
     Dates: start: 20071201, end: 20080101
  3. AMIODARONE [Suspect]
     Dates: start: 20080101, end: 20080701
  4. AMIODARONE [Suspect]
     Dates: start: 20080701, end: 20090201
  5. DARBEPOETIN ALFA [Concomitant]
     Dates: start: 20081001
  6. HYDROCHLOROTHIAZIDE [Concomitant]
     Dates: start: 20080701
  7. ACEBUTOLOL HYDROCHLORIDE [Concomitant]
  8. SPIRONOLACTONE [Concomitant]
     Dates: start: 20080701
  9. POTASSIUM CHLORIDE [Concomitant]
     Dates: start: 20080701
  10. LEVOTHYROXINE SODIUM [Concomitant]
     Dates: start: 20080701
  11. FUROSEMIDE [Concomitant]
     Dates: start: 20071201
  12. FUROSEMIDE [Concomitant]
     Dates: start: 20080601
  13. WARFARIN [Concomitant]
     Dates: start: 20071201

REACTIONS (7)
  - AXONAL NEUROPATHY [None]
  - BLOOD CREATINE PHOSPHOKINASE INCREASED [None]
  - DECUBITUS ULCER [None]
  - DRUG INEFFECTIVE [None]
  - DYSPNOEA [None]
  - MYOPATHY [None]
  - MYOSITIS [None]
